FAERS Safety Report 7569904-5 (Version None)
Quarter: 2011Q2

REPORT INFORMATION
  Report Type: 
  Country: None (occurrence: None)
  Receive Date: 20110622
  Receipt Date: 20110622
  Transmission Date: 20111010
  Serious: Yes (Hospitalization)
  Sender: FDA-Public Use
  Company Number: None

PATIENT
  Age: 46 Year
  Sex: Female
  Weight: 189.1 kg

DRUGS (2)
  1. OXALIPLATIN [Suspect]
     Dosage: 85MG/M2 IV QOWK
     Route: 042
     Dates: start: 20110607, end: 20110607
  2. GEMCITABINE [Suspect]
     Indication: PANCREATIC CARCINOMA
     Dosage: 1000MG/M2 IV QOWK
     Route: 042
     Dates: start: 20110606, end: 20110606

REACTIONS (6)
  - JAUNDICE [None]
  - ANAEMIA [None]
  - PYREXIA [None]
  - DISEASE PROGRESSION [None]
  - LIVER DISORDER [None]
  - LIVER FUNCTION TEST ABNORMAL [None]
